FAERS Safety Report 4398053-2 (Version None)
Quarter: 2004Q3

REPORT INFORMATION
  Report Type: 
  Country: None (occurrence: None)
  Receive Date: 20040715
  Receipt Date: 20040707
  Transmission Date: 20050211
  Serious: Yes (Other)
  Sender: FDA-Public Use
  Company Number: PHFR2004GB02755

PATIENT
  Age: 34 Year
  Sex: Female

DRUGS (4)
  1. CLOZARIL [Suspect]
     Indication: SCHIZOPHRENIA
     Route: 048
     Dates: start: 19971209
  2. CLOMIPRAMINE HCL [Concomitant]
     Route: 065
  3. QUETIAPINE [Concomitant]
     Route: 065
  4. PROCYCLIDINE HYDROCHLORIDE 2MG TAB [Concomitant]
     Route: 065

REACTIONS (5)
  - CHILLS [None]
  - DIARRHOEA [None]
  - DRUG WITHDRAWAL SYNDROME [None]
  - HYPERHIDROSIS [None]
  - SEROTONIN SYNDROME [None]
